FAERS Safety Report 22297728 (Version 1)
Quarter: 2023Q2

REPORT INFORMATION
  Report Type: Spontaneous
  Country: US (occurrence: US)
  Receive Date: 20230509
  Receipt Date: 20230509
  Transmission Date: 20230722
  Serious: Yes (Hospitalization)
  Sender: FDA-Public Use
  Company Number: US-STRIDES ARCOLAB LIMITED-2023SP006590

PATIENT
  Age: 86 Year
  Sex: Male

DRUGS (25)
  1. POLYETHYLENE GLYCOL 3350 [Suspect]
     Active Substance: POLYETHYLENE GLYCOL 3350
     Indication: Product used for unknown indication
     Dosage: 17 GRAM (AS NEEDED) (PER DAY)
     Route: 065
  2. AMLODIPINE [Suspect]
     Active Substance: AMLODIPINE BESYLATE
     Indication: Product used for unknown indication
     Dosage: 10 MILLIGRAM (PER DAY)
     Route: 065
  3. TRAMADOL [Suspect]
     Active Substance: TRAMADOL
     Indication: Product used for unknown indication
     Dosage: 50 MILLIGRAM, EVERY 4 HRS (AS NEEDED)
     Route: 065
  4. ENALAPRIL [Suspect]
     Active Substance: ENALAPRIL
     Indication: Hypertension
     Dosage: 10 MILLIGRAM, BID
     Route: 048
  5. ASPIRIN [Suspect]
     Active Substance: ASPIRIN
     Indication: Product used for unknown indication
     Dosage: 81 MILLIGRAM (PER DAY) (CHEWABLE TABLET)
     Route: 048
  6. ATORVASTATIN [Suspect]
     Active Substance: ATORVASTATIN
     Indication: Product used for unknown indication
     Dosage: 80 MILLIGRAM (PER DAY)
     Route: 065
  7. CLOPIDOGREL [Suspect]
     Active Substance: CLOPIDOGREL BISULFATE
     Indication: Product used for unknown indication
     Dosage: 75 MILLIGRAM (PER DAY)
     Route: 065
  8. INSULIN GLARGINE [Suspect]
     Active Substance: INSULIN GLARGINE
     Indication: Type 2 diabetes mellitus
     Dosage: 30 UNITS (30 UNITS ONCE DAILY)
     Route: 058
  9. PANTOPRAZOLE [Suspect]
     Active Substance: PANTOPRAZOLE
     Indication: Gastrooesophageal reflux disease
     Dosage: 40 MILLIGRAM (PER DAY)
     Route: 065
  10. TIMOLOL [Suspect]
     Active Substance: TIMOLOL
     Indication: Product used for unknown indication
     Dosage: UNK, BID (ONE DROP BOTH EYES TWICE DAILY  )
     Route: 047
  11. ACETAMINOPHEN [Suspect]
     Active Substance: ACETAMINOPHEN
     Indication: Product used for unknown indication
     Dosage: 325 MILLIGRAM, EVERY 4 HRS (1-2TABLETS; AS NEEDED)
     Route: 048
  12. LEVOTHYROXINE [Suspect]
     Active Substance: LEVOTHYROXINE
     Indication: Hypothyroidism
     Dosage: 50 MICROGRAM (PER DAY)
     Route: 065
  13. CALCIUM CARBONATE [Concomitant]
     Active Substance: CALCIUM CARBONATE
     Indication: Product used for unknown indication
     Dosage: 1500 MILLIGRAM, BID
     Route: 065
  14. CHOLECALCIFEROL [Concomitant]
     Active Substance: CHOLECALCIFEROL
     Indication: Vitamin supplementation
     Dosage: 1000 UNITS (1000 UNITS DAILY)
     Route: 065
  15. DONEPEZIL [Concomitant]
     Active Substance: DONEPEZIL
     Indication: Vascular dementia
     Dosage: 5 MILLIGRAM (PER DAY)
     Route: 065
  16. FLUTICASONE PROPIONATE [Concomitant]
     Active Substance: FLUTICASONE PROPIONATE
     Indication: Product used for unknown indication
     Dosage: UNK (NASAL SPRAY 2 SPRAYS EACH NOSTRIL DAILY)
     Route: 045
  17. INSULIN LISPRO [Concomitant]
     Active Substance: INSULIN LISPRO
     Indication: Type 2 diabetes mellitus
     Dosage: 8 UNITS (8 UNITS BEFORE MEALS)
     Route: 058
  18. LATANOPROST [Concomitant]
     Active Substance: LATANOPROST
     Indication: Product used for unknown indication
     Dosage: UNK (1 DROP BOTH EYES NIGHTLY; STRENGTH: 0.005%)
     Route: 047
  19. MIRTAZAPINE [Concomitant]
     Active Substance: MIRTAZAPINE
     Indication: Vascular dementia
     Dosage: 15 MILLIGRAM (PER DAY)
     Route: 065
  20. VITAMINS [Concomitant]
     Active Substance: VITAMINS
     Indication: Vitamin supplementation
     Dosage: UNK DAILY
     Route: 065
  21. SERTRALINE [Concomitant]
     Active Substance: SERTRALINE HYDROCHLORIDE
     Indication: Vascular dementia
     Dosage: 50 MILLIGRAM, UNKNOWN
     Route: 065
  22. METHYLPREDNISOLONE [Concomitant]
     Active Substance: METHYLPREDNISOLONE
     Indication: Product used for unknown indication
     Dosage: UNK
     Route: 065
  23. DIPHENHYDRAMINE [Concomitant]
     Active Substance: DIPHENHYDRAMINE
     Indication: Product used for unknown indication
     Dosage: UNK
     Route: 065
  24. EPINEPHRINE [Concomitant]
     Active Substance: EPINEPHRINE
     Indication: Product used for unknown indication
     Dosage: UNK
     Route: 030
  25. FRESH FROZEN PLASMA [Concomitant]
     Active Substance: HUMAN PLASMA
     Indication: Product used for unknown indication
     Dosage: UNK
     Route: 065

REACTIONS (1)
  - Angioedema [Recovered/Resolved]
